FAERS Safety Report 21538562 (Version 1)
Quarter: 2022Q4

REPORT INFORMATION
  Report Type: Spontaneous
  Country: CN (occurrence: CN)
  Receive Date: 20221102
  Receipt Date: 20221102
  Transmission Date: 20230113
  Serious: Yes (Hospitalization, Other)
  Sender: FDA-Public Use
  Company Number: None

PATIENT
  Age: 70 Year
  Sex: Female
  Weight: 45 kg

DRUGS (16)
  1. CYCLOPHOSPHAMIDE [Suspect]
     Active Substance: CYCLOPHOSPHAMIDE
     Indication: Diffuse large B-cell lymphoma stage IV
     Dosage: DOSAGE FORM: LYOPHILIZED POWDER, 0.8 G, QD (DILUTED WITH 100 ML OF NS)
     Route: 041
     Dates: start: 20220707, end: 20220707
  2. RITUXIMAB [Suspect]
     Active Substance: RITUXIMAB
     Indication: Diffuse large B-cell lymphoma stage IV
     Dosage: (DABOHUA) 0.1 G, 5 TIMES PER DAY (DILUTED WITH 90 ML OF NS)
     Route: 041
     Dates: start: 20220704, end: 20220704
  3. EPIRUBICIN [Suspect]
     Active Substance: EPIRUBICIN
     Indication: Diffuse large B-cell lymphoma stage IV
     Dosage: 80 MG, QD (DILUTED WITH 100 ML OF NS)
     Route: 041
     Dates: start: 20220707, end: 20220707
  4. MESNA [Suspect]
     Active Substance: MESNA
     Indication: Diffuse large B-cell lymphoma stage IV
     Dosage: (BANGQI) 0.4 G, TID
     Route: 041
     Dates: start: 20220707, end: 20220707
  5. METHIONINE [Suspect]
     Active Substance: METHIONINE
     Indication: Diffuse large B-cell lymphoma stage IV
     Dosage: 0.4 G, TID (DILUTED WITH 100 ML OF NS)
     Route: 041
     Dates: start: 20220707, end: 20220707
  6. SODIUM CHLORIDE [Suspect]
     Active Substance: SODIUM CHLORIDE
     Indication: Vehicle solution use
     Dosage: 100 ML, QD (USED TO DILUTE 0.8 G CYCLOPHOSPHAMIDE)
     Route: 041
     Dates: start: 20220707, end: 20220707
  7. SODIUM CHLORIDE [Suspect]
     Active Substance: SODIUM CHLORIDE
     Dosage: 90 ML, 5 TIMES PER DAY (USED TO DILUTE 0.1 G RITUXIMAB)
     Route: 041
     Dates: start: 20220704, end: 20220704
  8. SODIUM CHLORIDE [Suspect]
     Active Substance: SODIUM CHLORIDE
     Dosage: 100 ML, QD (USED TO DILUTE 80 MG EPIRUBICIN)
     Route: 041
     Dates: start: 20220707, end: 20220707
  9. SODIUM CHLORIDE [Suspect]
     Active Substance: SODIUM CHLORIDE
     Dosage: 100 ML, TID (USED TO DILUTE 0.4 G METHIONINE)
     Route: 041
     Dates: start: 20220707, end: 20220707
  10. NUO JIA NAN [Concomitant]
     Indication: Pneumonia bacterial
     Dosage: 0.3 G, TID (DILUTED WITH 100 ML OF NS)
     Route: 041
     Dates: start: 20220627, end: 20220711
  11. NUO JIA NAN [Concomitant]
     Indication: Anti-infective therapy
  12. SODIUM CHLORIDE [Concomitant]
     Active Substance: SODIUM CHLORIDE
     Indication: Vehicle solution use
     Dosage: 100 ML, TID (USED TO DILUTE 0.3 G BIAPENEM)
     Route: 041
     Dates: start: 20220627, end: 20220711
  13. MOXIFLOXACIN HYDROCHLORIDE [Concomitant]
     Active Substance: MOXIFLOXACIN HYDROCHLORIDE
     Indication: Pneumonia bacterial
     Dosage: (ANRUOTA) 0.4 G, QD
     Route: 041
     Dates: start: 20220628, end: 20220708
  14. MOXIFLOXACIN HYDROCHLORIDE [Concomitant]
     Active Substance: MOXIFLOXACIN HYDROCHLORIDE
     Indication: Anti-infective therapy
  15. FLUCONAZOLE [Concomitant]
     Active Substance: FLUCONAZOLE
     Indication: Pneumonia bacterial
     Dosage: 100 MG, QD
     Route: 048
     Dates: start: 20220628, end: 20220707
  16. FLUCONAZOLE [Concomitant]
     Active Substance: FLUCONAZOLE
     Indication: Anti-infective therapy

REACTIONS (3)
  - Condition aggravated [Recovered/Resolved]
  - Cytopenia [Recovered/Resolved]
  - Pyrexia [Recovered/Resolved]

NARRATIVE: CASE EVENT DATE: 20220708
